FAERS Safety Report 23921186 (Version 1)
Quarter: 2024Q2

REPORT INFORMATION
  Report Type: Report from Study
  Country: TR (occurrence: TR)
  Receive Date: 20240530
  Receipt Date: 20240530
  Transmission Date: 20240716
  Serious: Yes (Other)
  Sender: FDA-Public Use
  Company Number: TR-TEVA-VS-3203003

PATIENT
  Age: 65 Year
  Sex: Female

DRUGS (3)
  1. PREDNISOLONE [Suspect]
     Active Substance: PREDNISOLONE
     Indication: Pemphigus
     Route: 065
  2. RITUXIMAB [Suspect]
     Active Substance: RITUXIMAB
     Indication: Pemphigus
     Dosage: 1G/DAY WITH AN INTERVAL OF 15?DAYS FOR 2 DOSES
     Route: 065
  3. TOZINAMERAN [Suspect]
     Active Substance: TOZINAMERAN
     Indication: COVID-19 immunisation
     Dosage: RECEIVED 1 DOSE
     Route: 065

REACTIONS (2)
  - Vaccination failure [Unknown]
  - COVID-19 [Unknown]
